FAERS Safety Report 10200259 (Version 2)
Quarter: 2014Q3

REPORT INFORMATION
  Report Type: Spontaneous
  Country: US (occurrence: US)
  Receive Date: 20140527
  Receipt Date: 20140915
  Transmission Date: 20150326
  Serious: Yes (Death, Hospitalization)
  Sender: FDA-Public Use
  Company Number: US-SA-2014SA005639

PATIENT
  Age: 69 Year
  Sex: Male

DRUGS (2)
  1. IMMUNOGLOBULIN [Concomitant]
     Active Substance: HUMAN IMMUNOGLOBULIN G
     Indication: HYPOGAMMAGLOBULINAEMIA
     Dates: end: 20140111
  2. CAMPATH [Suspect]
     Active Substance: ALEMTUZUMAB
     Indication: MYELODYSPLASTIC SYNDROME
     Dosage: FREQUENCY: 6XMONTH
     Route: 042
     Dates: start: 20130814, end: 20131115

REACTIONS (3)
  - Arthritis infective [Recovered/Resolved]
  - Zygomycosis [Unknown]
  - Death [Fatal]

NARRATIVE: CASE EVENT DATE: 20131202
